FAERS Safety Report 15295503 (Version 2)
Quarter: 2018Q3

REPORT INFORMATION
  Report Type: Report from Study
  Country: US (occurrence: US)
  Receive Date: 20180820
  Receipt Date: 20180821
  Transmission Date: 20181010
  Serious: Yes (Hospitalization, Other)
  Sender: FDA-Public Use
  Company Number: PHEH2018US033920

PATIENT
  Sex: Female

DRUGS (1)
  1. COSENTYX [Suspect]
     Active Substance: SECUKINUMAB
     Indication: PSORIASIS
     Dosage: 300 MG, QMO
     Route: 058
     Dates: start: 20180530

REACTIONS (5)
  - Fall [Recovering/Resolving]
  - Wound dehiscence [Recovering/Resolving]
  - Inappropriate schedule of drug administration [Unknown]
  - Spinal disorder [Recovering/Resolving]
  - Spinal fracture [Recovering/Resolving]
